FAERS Safety Report 13097029 (Version 1)
Quarter: 2017Q1

REPORT INFORMATION
  Report Type: Spontaneous
  Country: US (occurrence: US)
  Receive Date: 20170106
  Receipt Date: 20170106
  Transmission Date: 20170428
  Serious: No
  Sender: FDA-Public Use
  Company Number: None

PATIENT
  Age: 37 Year
  Sex: Male
  Weight: 90 kg

DRUGS (3)
  1. OXYCODONE [Concomitant]
     Active Substance: OXYCODONE
  2. BUPROPION HCL 300MG 24HR SA TAB [Suspect]
     Active Substance: BUPROPION HYDROCHLORIDE
     Indication: DEPRESSION
     Dosage: ?          QUANTITY:90 TABLET(S);?
     Route: 048
     Dates: start: 20170102, end: 20170106
  3. GABAPENTIN. [Concomitant]
     Active Substance: GABAPENTIN

REACTIONS (13)
  - Disease recurrence [None]
  - Headache [None]
  - Amnesia [None]
  - Anger [None]
  - Product substitution issue [None]
  - Fatigue [None]
  - Gastrointestinal disorder [None]
  - Feeling jittery [None]
  - Panic attack [None]
  - Depression [None]
  - Nausea [None]
  - Condition aggravated [None]
  - Dizziness [None]

NARRATIVE: CASE EVENT DATE: 20170102
